FAERS Safety Report 10004885 (Version 1)
Quarter: 2014Q1

REPORT INFORMATION
  Report Type: Spontaneous
  Country: US (occurrence: US)
  Receive Date: 20140312
  Receipt Date: 20140312
  Transmission Date: 20141002
  Serious: No
  Sender: FDA-Public Use
  Company Number: US-B.I. PHARMACEUTICALS,INC./RIDGEFIELD-2014-BI-09003BP

PATIENT
  Age: 68 Year
  Sex: Male

DRUGS (5)
  1. MICARDIS HCT [Suspect]
     Indication: HYPERTENSION
     Dosage: STRENGTH: 80 MG / 12.5 MG; DAILY DOSE: 80 MG/ 12.5 MG
     Route: 048
  2. FOLIC ACID [Concomitant]
     Route: 048
  3. METOPROLOL [Concomitant]
     Route: 048
  4. CRESTOR [Concomitant]
     Route: 048
  5. MULTIVITAMIN [Concomitant]
     Route: 048

REACTIONS (1)
  - Blood pressure increased [Recovered/Resolved]
